FAERS Safety Report 9702816 (Version 2)
Quarter: 2013Q4

REPORT INFORMATION
  Report Type: Spontaneous
  Country: DE (occurrence: None)
  Receive Date: 20131120
  Receipt Date: 20131126
  Transmission Date: 20140711
  Serious: Yes (Other)
  Sender: FDA-Public Use
  Company Number: 1311-1461

PATIENT
  Age: 82 Year
  Sex: Male

DRUGS (1)
  1. EYLEA [Suspect]
     Dates: start: 20131024, end: 20131024

REACTIONS (5)
  - Retinal degeneration [None]
  - Maculopathy [None]
  - Visual field defect [None]
  - Detachment of retinal pigment epithelium [None]
  - Metamorphopsia [None]
